FAERS Safety Report 5488926-1 (Version None)
Quarter: 2007Q4

REPORT INFORMATION
  Report Type: 
  Country: None (occurrence: None)
  Receive Date: 20071017
  Receipt Date: 20071008
  Transmission Date: 20080405
  Serious: Yes (Other)
  Sender: FDA-Public Use
  Company Number: JP-GILEAD-2007-0013776

PATIENT
  Sex: Male

DRUGS (2)
  1. HEPSERA [Suspect]
     Route: 048
     Dates: start: 20051208
  2. ZEFIX [Suspect]
     Route: 048
     Dates: start: 20030820

REACTIONS (1)
  - HEPATIC NEOPLASM MALIGNANT [None]
